FAERS Safety Report 5328661-3 (Version None)
Quarter: 2007Q2

REPORT INFORMATION
  Report Type: 
  Country: None (occurrence: None)
  Receive Date: 20070518
  Receipt Date: 20070516
  Transmission Date: 20071010
  Serious: Yes (Other)
  Sender: FDA-Public Use
  Company Number: A0643060A

PATIENT
  Age: 76 Year
  Sex: Male
  Weight: 87.7 kg

DRUGS (3)
  1. COREG [Suspect]
     Dosage: 25MG SINGLE DOSE
     Route: 048
     Dates: start: 20041010
  2. HYDROCHLOROTHIAZIDE [Concomitant]
     Dosage: 25MG PER DAY
     Route: 048
  3. FUROSEMIDE [Concomitant]
     Dosage: 20MG PER DAY
     Route: 048

REACTIONS (1)
  - RESPIRATORY DEPRESSION [None]
